FAERS Safety Report 13717882 (Version 1)
Quarter: 2017Q3

REPORT INFORMATION
  Report Type: Spontaneous
  Country: BR (occurrence: BR)
  Receive Date: 20170705
  Receipt Date: 20170705
  Transmission Date: 20171127
  Serious: Yes (Other)
  Sender: FDA-Public Use
  Company Number: BR-PFIZER INC-2016377614

PATIENT
  Age: 57 Year
  Sex: Female

DRUGS (1)
  1. SUTENT [Suspect]
     Active Substance: SUNITINIB MALATE
     Dosage: 50 MG, UNK
     Dates: start: 20160727, end: 201703

REACTIONS (10)
  - Fracture [Unknown]
  - Neoplasm progression [Unknown]
  - Nodule [Recovered/Resolved]
  - Haematochezia [Unknown]
  - Nausea [Unknown]
  - Pain [Unknown]
  - Skeletal injury [Unknown]
  - Haemoptysis [Unknown]
  - Productive cough [Unknown]
  - Tongue disorder [Unknown]

NARRATIVE: CASE EVENT DATE: 2016
